FAERS Safety Report 23886396 (Version 2)
Quarter: 2024Q2

REPORT INFORMATION
  Report Type: Spontaneous
  Country: US (occurrence: US)
  Receive Date: 20240522
  Receipt Date: 20240628
  Transmission Date: 20240717
  Serious: No
  Sender: FDA-Public Use
  Company Number: US-BEH-2024172014

PATIENT
  Age: 51 Year
  Sex: Female

DRUGS (33)
  1. HIZENTRA [Suspect]
     Active Substance: HUMAN IMMUNOGLOBULIN G
     Indication: Immunodeficiency
     Dosage: 16 G, QOW, ALTERNATING WITH 20G
     Route: 058
     Dates: start: 20230206
  2. HIZENTRA [Suspect]
     Active Substance: HUMAN IMMUNOGLOBULIN G
     Dosage: 20 G, QOW ALTERNATING WITH 16G
     Route: 058
     Dates: start: 20230206
  3. HIZENTRA [Suspect]
     Active Substance: HUMAN IMMUNOGLOBULIN G
     Dosage: UNK
     Route: 058
  4. HIZENTRA [Suspect]
     Active Substance: HUMAN IMMUNOGLOBULIN G
     Dosage: UNK
     Route: 058
  5. ADDERALL [Concomitant]
     Active Substance: AMPHETAMINE ASPARTATE\AMPHETAMINE SULFATE\DEXTROAMPHETAMINE SACCHARATE\DEXTROAMPHETAMINE SULFATE
     Dosage: UNK MG
  6. ADDERALL [Concomitant]
     Active Substance: AMPHETAMINE ASPARTATE\AMPHETAMINE SULFATE\DEXTROAMPHETAMINE SACCHARATE\DEXTROAMPHETAMINE SULFATE
  7. ALBUTEROL SULFATE [Concomitant]
     Active Substance: ALBUTEROL SULFATE
  8. ATORVASTATIN [Concomitant]
     Active Substance: ATORVASTATIN
  9. AZITHROMYCIN [Concomitant]
     Active Substance: AZITHROMYCIN
  10. BUDESONIDE\FORMOTEROL [Concomitant]
     Active Substance: BUDESONIDE\FORMOTEROL
  11. BUDESONIDE [Concomitant]
     Active Substance: BUDESONIDE
  12. CELECOXIB [Concomitant]
     Active Substance: CELECOXIB
  13. ELIQUIS [Concomitant]
     Active Substance: APIXABAN
  14. ELIQUIS [Concomitant]
     Active Substance: APIXABAN
  15. EPINEPHRINE [Concomitant]
     Active Substance: EPINEPHRINE
  16. FLUOXETINE [Concomitant]
     Active Substance: FLUOXETINE HYDROCHLORIDE
  17. FLUOXETINE [Concomitant]
     Active Substance: FLUOXETINE HYDROCHLORIDE
  18. JARDIANCE [Concomitant]
     Active Substance: EMPAGLIFLOZIN
  19. LISINOPRIL [Concomitant]
     Active Substance: LISINOPRIL
  20. LISINOPRIL [Concomitant]
     Active Substance: LISINOPRIL
  21. METFORMIN [Concomitant]
     Active Substance: METFORMIN HYDROCHLORIDE
  22. METHYLPREDNISOLONE [Concomitant]
     Active Substance: METHYLPREDNISOLONE
  23. MIRENA [Concomitant]
     Active Substance: LEVONORGESTREL
  24. MUPIROCIN [Concomitant]
     Active Substance: MUPIROCIN
  25. ONDANSETRON [Concomitant]
     Active Substance: ONDANSETRON
  26. OZEMPIC [Concomitant]
     Active Substance: SEMAGLUTIDE
  27. PREDNISONE [Concomitant]
     Active Substance: PREDNISONE
  28. PROCHLORPERAZINE [Concomitant]
     Active Substance: PROCHLORPERAZINE
  29. SYMBICORT [Concomitant]
     Active Substance: BUDESONIDE\FORMOTEROL FUMARATE DIHYDRATE
  30. VITAMIN D [Concomitant]
     Active Substance: VITAMIN D NOS
  31. WARFARIN [Concomitant]
     Active Substance: WARFARIN
  32. ZYRTEC [Concomitant]
     Active Substance: CETIRIZINE HYDROCHLORIDE
  33. METFORMIN [Concomitant]
     Active Substance: METFORMIN HYDROCHLORIDE

REACTIONS (1)
  - Sinusitis [Not Recovered/Not Resolved]
